FAERS Safety Report 6859631-1 (Version None)
Quarter: 2010Q3

REPORT INFORMATION
  Report Type: 
  Country: None (occurrence: None)
  Receive Date: 20100719
  Receipt Date: 20080607
  Transmission Date: 20110219
  Serious: No
  Sender: FDA-Public Use
  Company Number: US-PFIZER INC-2008020630

PATIENT
  Sex: Female
  Weight: 74.84 kg

DRUGS (4)
  1. CHANTIX [Suspect]
     Indication: SMOKING CESSATION THERAPY
     Route: 048
     Dates: start: 20080201
  2. PERCOCET [Concomitant]
     Indication: BACK PAIN
  3. LEVOXYL [Concomitant]
     Indication: THYROID DISORDER
  4. NAPROXEN [Concomitant]

REACTIONS (4)
  - ABNORMAL DREAMS [None]
  - BREATH ODOUR [None]
  - NAUSEA [None]
  - VOMITING [None]
